FAERS Safety Report 8519549-5 (Version None)
Quarter: 2012Q3

REPORT INFORMATION
  Report Type: 
  Country: None (occurrence: None)
  Receive Date: 20120718
  Receipt Date: 20120712
  Transmission Date: 20120928
  Serious: Yes (Other)
  Sender: FDA-Public Use
  Company Number: CN-BAYER-2012-069754

PATIENT
  Sex: Male

DRUGS (16)
  1. MOXIFLOXACIN [Suspect]
     Dosage: UNK
     Dates: start: 20111205
  2. XUANJU CAPSULE [Concomitant]
     Dosage: UNK
     Dates: start: 20111026
  3. QIANLIE BEIXI [Concomitant]
     Dosage: UNK
     Dates: start: 20111108
  4. QIANLIE SHUTONG [Concomitant]
     Dosage: UNK
     Dates: start: 20110923
  5. RE LIN QING [Concomitant]
     Dosage: UNK
     Dates: start: 20111226
  6. CIPROFLOXACIN [Concomitant]
     Dosage: UNK
     Dates: start: 20111205
  7. ROXITHROMYCIN [Concomitant]
     Dosage: UNK
     Dates: start: 20111226
  8. RUFLOXACIN [Concomitant]
     Dosage: UNK
     Dates: start: 20110923
  9. TAMSULOSIN HYDROCHLORIDE [Concomitant]
     Dosage: UNK
     Dates: start: 20110923
  10. GATIFLOXACIN [Concomitant]
     Dosage: UNK
     Route: 042
     Dates: start: 20120106
  11. SULFAMETHOXAZOLE [Concomitant]
     Dosage: UNK
     Dates: start: 20111226
  12. CEPHALOSPORINS AND RELATED SUBSTANCES [Concomitant]
  13. NING BI TAI [Concomitant]
     Dosage: UNK
     Dates: start: 20110926
  14. SPARFLOXACIN [Concomitant]
  15. CEFPODOXIME PROXETIL [Concomitant]
     Dosage: UNK
     Dates: start: 20110923
  16. QIANLIE'AN SHUAN [Concomitant]
     Dosage: UNK
     Dates: start: 20111026

REACTIONS (2)
  - PROSTATITIS [None]
  - DRUG INEFFECTIVE [None]
